FAERS Safety Report 10189952 (Version 1)
Quarter: 2014Q2

REPORT INFORMATION
  Report Type: Spontaneous
  Country: US (occurrence: US)
  Receive Date: 20140522
  Receipt Date: 20140522
  Transmission Date: 20141212
  Serious: No
  Sender: FDA-Public Use
  Company Number: US-ENDO PHARMACEUTICALS INC.-PRAN20140001

PATIENT
  Age: 56 Year
  Sex: Female

DRUGS (4)
  1. PROPRANOLOL HCL TABLETS 10MG [Suspect]
     Indication: MIGRAINE
     Route: 048
     Dates: start: 20140215, end: 20140222
  2. PROPRANOLOL HCL TABLETS 10MG [Suspect]
     Indication: PALPITATIONS
  3. PROPRANOLOL [Concomitant]
     Indication: MIGRAINE
     Route: 048
     Dates: start: 2011, end: 20140214
  4. PROPRANOLOL [Concomitant]
     Indication: PALPITATIONS
     Route: 048
     Dates: start: 201402

REACTIONS (4)
  - Pollakiuria [Recovered/Resolved]
  - Fatigue [Recovered/Resolved]
  - Asthenia [Recovered/Resolved]
  - Drug ineffective [Recovered/Resolved]
